FAERS Safety Report 9949218 (Version 1)
Quarter: 2014Q1

REPORT INFORMATION
  Report Type: Spontaneous
  Country: US (occurrence: None)
  Receive Date: 20140122
  Receipt Date: 20140122
  Transmission Date: 20141002
  Serious: No
  Sender: FDA-Public Use
  Company Number: AEGR000213

PATIENT
  Age: 57 Year
  Sex: Male
  Weight: 101.6 kg

DRUGS (7)
  1. JUXTAPID (LOMITAPIDE) CAPSULE, 5MG [Suspect]
     Indication: TYPE IIA HYPERLIPIDAEMIA
     Route: 048
     Dates: start: 20130823, end: 20131118
  2. METOPROLOL (METOPROLOL SUCCINATE) [Concomitant]
  3. PLAVIX (CLOPIDOGREL BISULFATE) (CLOPIDOGREL BISULFATE) [Concomitant]
  4. ASA (ASA) [Concomitant]
  5. ALEVE (NAPROXEN SODIUM) [Concomitant]
  6. ZINC (ARACHIS HYPOGAEA OIL, OLEIC ACID, WOOL FAT, ZINC OXIDE) [Concomitant]
  7. RANEXA (RANOLAZINE) [Concomitant]

REACTIONS (6)
  - Decreased appetite [None]
  - Vomiting [None]
  - Nausea [None]
  - Diarrhoea [None]
  - Flatulence [None]
  - Weight decreased [None]
